FAERS Safety Report 9503818 (Version 1)
Quarter: 2013Q3

REPORT INFORMATION
  Report Type: Spontaneous
  Country: GR (occurrence: GR)
  Receive Date: 20130906
  Receipt Date: 20130906
  Transmission Date: 20140515
  Serious: Yes (Other)
  Sender: FDA-Public Use
  Company Number: GR-JNJFOC-20130901205

PATIENT
  Age: 41 Year
  Sex: Female

DRUGS (1)
  1. SIMPONI [Suspect]
     Indication: PSORIATIC ARTHROPATHY
     Dosage: FROM LAST 6 MONTHS
     Route: 042
     Dates: start: 2013

REACTIONS (2)
  - Choking sensation [Not Recovered/Not Resolved]
  - Mucosal dryness [Not Recovered/Not Resolved]
